FAERS Safety Report 6193099-6 (Version None)
Quarter: 2009Q2

REPORT INFORMATION
  Report Type: 
  Country: None (occurrence: None)
  Receive Date: 20090518
  Receipt Date: 20090515
  Transmission Date: 20091009
  Serious: Yes (Death)
  Sender: FDA-Public Use
  Company Number: US-ASTRAZENECA-2009UW12525

PATIENT
  Age: 38 Year
  Sex: Male

DRUGS (1)
  1. SEROQUEL [Suspect]
     Indication: SEDATION
     Route: 048

REACTIONS (5)
  - DECREASED APPETITE [None]
  - DEEP VEIN THROMBOSIS [None]
  - EATING DISORDER [None]
  - LETHARGY [None]
  - PULMONARY EMBOLISM [None]
